FAERS Safety Report 13979964 (Version 2)
Quarter: 2018Q3

REPORT INFORMATION
  Report Type: Spontaneous
  Country: US (occurrence: US)
  Receive Date: 20170914
  Receipt Date: 20180913
  Transmission Date: 20181010
  Serious: No
  Sender: FDA-Public Use
  Company Number: US-ASTELLAS-2017US026586

PATIENT
  Sex: Male

DRUGS (1)
  1. XTANDI [Suspect]
     Active Substance: ENZALUTAMIDE
     Indication: BLADDER CANCER
     Route: 065

REACTIONS (5)
  - Fatigue [Unknown]
  - Constipation [Unknown]
  - Off label use [Unknown]
  - Rash [Unknown]
  - Drug dose omission [Unknown]
